FAERS Safety Report 10071978 (Version 4)
Quarter: 2014Q2

REPORT INFORMATION
  Report Type: Spontaneous
  Country: US (occurrence: None)
  Receive Date: 20140313
  Receipt Date: 20140506
  Transmission Date: 20141212
  Serious: Yes (Disabling, Other)
  Sender: FDA-Public Use
  Company Number: 1402-0401

PATIENT
  Age: 80 Year
  Sex: Male

DRUGS (3)
  1. EYLEA [Suspect]
     Indication: AGE-RELATED MACULAR DEGENERATION
     Dates: start: 20120524, end: 20140221
  2. GENTAMICIN EYE DROPS (GENTAMICIN SULFATE ) [Concomitant]
  3. ARTIFICIAL TEARS (HYPROMELLOSE) [Concomitant]

REACTIONS (6)
  - Endophthalmitis [None]
  - Visual acuity reduced [None]
  - Vitreous disorder [None]
  - Eye inflammation [None]
  - Blindness [None]
  - Blindness transient [None]
